FAERS Safety Report 9235430 (Version 1)
Quarter: 2013Q2

REPORT INFORMATION
  Report Type: Spontaneous
  Country: US (occurrence: None)
  Receive Date: 20130416
  Receipt Date: 20130416
  Transmission Date: 20140414
  Serious: Yes (Other)
  Sender: FDA-Public Use
  Company Number: None

PATIENT
  Age: 38 Year
  Sex: Female
  Weight: 84.8 kg

DRUGS (1)
  1. IOPAMIDOL [Suspect]
     Route: 042
     Dates: start: 20130120

REACTIONS (5)
  - Sneezing [None]
  - Throat irritation [None]
  - Contrast media reaction [None]
  - Cough [None]
  - Wheezing [None]
